FAERS Safety Report 23507323 (Version 2)
Quarter: 2024Q4

REPORT INFORMATION
  Report Type: Spontaneous
  Country: RO (occurrence: RO)
  Receive Date: 20240209
  Receipt Date: 20241013
  Transmission Date: 20250115
  Serious: Yes (Other)
  Sender: AMGEN
  Company Number: RO-AMGEN-ROUSP2024021809

PATIENT
  Age: 67 Year
  Sex: Male

DRUGS (9)
  1. VECTIBIX [Suspect]
     Active Substance: PANITUMUMAB
     Indication: Colorectal cancer metastatic
     Dosage: 6 MILLIGRAM/KILOGRAM
     Route: 042
     Dates: start: 20210521
  2. VECTIBIX [Suspect]
     Active Substance: PANITUMUMAB
     Dosage: UNK, (80% OF DOSE)
     Route: 042
     Dates: start: 202111
  3. BEVACIZUMAB [Suspect]
     Active Substance: BEVACIZUMAB
     Indication: Product used for unknown indication
     Dosage: UNK
     Route: 065
     Dates: start: 20210504
  4. BEVACIZUMAB [Suspect]
     Active Substance: BEVACIZUMAB
     Dosage: UNK
     Route: 065
     Dates: start: 202209, end: 202301
  5. BEVACIZUMAB [Suspect]
     Active Substance: BEVACIZUMAB
     Dosage: UNK UNK, Q3WK
     Route: 065
     Dates: start: 202302, end: 202304
  6. LEUCOVORIN [Suspect]
     Active Substance: LEUCOVORIN\LEUCOVORIN CALCIUM
     Indication: Colorectal cancer metastatic
     Dosage: UNK
     Route: 042
     Dates: start: 20210521
  7. FLUOROURACIL [Suspect]
     Active Substance: FLUOROURACIL
     Indication: Colorectal cancer metastatic
     Dosage: UNK
     Route: 042
     Dates: start: 20210521
  8. OXALIPLATIN [Suspect]
     Active Substance: OXALIPLATIN
     Indication: Colorectal cancer metastatic
     Dosage: UNK
     Route: 065
     Dates: start: 20210521
  9. CAPECITABINE [Concomitant]
     Active Substance: CAPECITABINE
     Dosage: UNK UNK, Q3WK
     Route: 065
     Dates: start: 202302

REACTIONS (27)
  - Polyneuropathy [Unknown]
  - Angina pectoris [Unknown]
  - Sepsis [Unknown]
  - Deep vein thrombosis [Unknown]
  - Colorectal adenocarcinoma [Unknown]
  - Hepatic failure [Unknown]
  - Hypokalaemia [Unknown]
  - Hepatotoxicity [Unknown]
  - Hypocalcaemia [Unknown]
  - Balanoposthitis [Unknown]
  - COVID-19 [Unknown]
  - Phimosis [Unknown]
  - Skin fissures [Unknown]
  - Xeroderma [Unknown]
  - Skin hyperpigmentation [Unknown]
  - Alopecia [Unknown]
  - Hypomagnesaemia [Unknown]
  - Traumatic ulcer [Unknown]
  - Paronychia [Unknown]
  - Onycholysis [Unknown]
  - Nasal ulcer [Unknown]
  - Mucosal inflammation [Unknown]
  - Eczema [Unknown]
  - Nasal crusting [Unknown]
  - Skin haemorrhage [Unknown]
  - Clonal haematopoiesis [Unknown]
  - Lung disorder [Unknown]

NARRATIVE: CASE EVENT DATE: 20210501
